FAERS Safety Report 9166541 (Version 7)
Quarter: 2017Q1

REPORT INFORMATION
  Report Type: Spontaneous
  Country: US (occurrence: US)
  Receive Date: 20130315
  Receipt Date: 20170215
  Transmission Date: 20170429
  Serious: Yes (Other)
  Sender: FDA-Public Use
  Company Number: US-009507513-1303USA007572

PATIENT
  Sex: Male
  Weight: 109.66 kg

DRUGS (3)
  1. PROPECIA [Suspect]
     Active Substance: FINASTERIDE
     Indication: ALOPECIA
     Dosage: 1 MG, QD
     Route: 048
     Dates: start: 20060928, end: 201212
  2. FINASTERIDE. [Suspect]
     Active Substance: FINASTERIDE
     Indication: ALOPECIA
     Dosage: 1 MG, QD
     Route: 048
     Dates: start: 20130120, end: 201411
  3. ZYRTEC [Concomitant]
     Active Substance: CETIRIZINE HYDROCHLORIDE
     Indication: HYPERSENSITIVITY
     Dosage: 10 MG, QD
     Route: 048

REACTIONS (18)
  - Dyslipidaemia [Unknown]
  - Vitamin D deficiency [Unknown]
  - Adjustment disorder [Unknown]
  - Erectile dysfunction [Unknown]
  - Sinusitis [Unknown]
  - Gynaecomastia [Unknown]
  - Insomnia [Unknown]
  - Nasal congestion [Unknown]
  - Deafness [Unknown]
  - Asthma [Unknown]
  - Essential hypertension [Unknown]
  - Fatigue [Unknown]
  - Anhedonia [Unknown]
  - Perseveration [Unknown]
  - Cognitive disorder [Not Recovered/Not Resolved]
  - Sleep apnoea syndrome [Unknown]
  - Sexual dysfunction [Not Recovered/Not Resolved]
  - Generalised anxiety disorder [Unknown]

NARRATIVE: CASE EVENT DATE: 20110520
